FAERS Safety Report 8230556-2 (Version None)
Quarter: 2012Q1

REPORT INFORMATION
  Report Type: 
  Country: None (occurrence: None)
  Receive Date: 20120323
  Receipt Date: 20120315
  Transmission Date: 20120608
  Serious: Yes (Other)
  Sender: FDA-Public Use
  Company Number: AU-JNJFOC-20120305434

PATIENT
  Sex: Male

DRUGS (6)
  1. STELARA [Suspect]
     Route: 058
     Dates: start: 20110427, end: 20110427
  2. STELARA [Suspect]
     Route: 058
     Dates: start: 20101109, end: 20101109
  3. STELARA [Suspect]
     Route: 058
     Dates: start: 20111125, end: 20111125
  4. STELARA [Suspect]
     Indication: PSORIASIS
     Route: 058
     Dates: start: 20110202, end: 20110202
  5. STELARA [Suspect]
     Route: 058
     Dates: start: 20110831, end: 20110831
  6. STELARA [Suspect]
     Route: 058
     Dates: start: 20101012, end: 20101012

REACTIONS (1)
  - GASTROENTERITIS [None]
